FAERS Safety Report 11899423 (Version 2)
Quarter: 2016Q1

REPORT INFORMATION
  Report Type: Spontaneous
  Country: US (occurrence: US)
  Receive Date: 20160108
  Receipt Date: 20160120
  Transmission Date: 20160526
  Serious: No
  Sender: FDA-Public Use
  Company Number: US-009507513-1512USA012632

PATIENT
  Age: 15 Year
  Sex: Female
  Weight: 68.27 kg

DRUGS (2)
  1. NEXPLANON [Suspect]
     Active Substance: ETONOGESTREL
     Indication: CONTRACEPTION
     Dosage: FREQUENCY: ^3 YEARS^ ROUTE: RIGHT ARM
     Route: 059
     Dates: start: 20150310
  2. PENICILLIN (UNSPECIFIED) [Concomitant]
     Active Substance: PENICILLIN
     Indication: PHARYNGITIS STREPTOCOCCAL

REACTIONS (1)
  - Menorrhagia [Not Recovered/Not Resolved]

NARRATIVE: CASE EVENT DATE: 201511
